FAERS Safety Report 8934610 (Version 2)
Quarter: 2013Q1

REPORT INFORMATION
  Report Type: Report from Study
  Country: GB (occurrence: GB)
  Receive Date: 20121129
  Receipt Date: 20130107
  Transmission Date: 20140127
  Serious: Yes (Life-Threatening, Hospitalization)
  Sender: FDA-Public Use
  Company Number: GB-ROCHE-1156143

PATIENT
  Age: 50 Year
  Sex: Female
  Weight: 105 kg

DRUGS (12)
  1. TOCILIZUMAB [Suspect]
     Indication: RHEUMATOID ARTHRITIS
     Dosage: LAST DOSE PRIOR TO EVET ON 04/NOV/2012
     Route: 042
     Dates: start: 20110304, end: 20121012
  2. METHOTREXATE [Concomitant]
     Route: 058
     Dates: start: 20080627, end: 20121104
  3. LEFLUNOMIDE [Concomitant]
     Route: 048
     Dates: start: 20101001, end: 20121104
  4. SULFASALAZINE [Concomitant]
     Route: 048
  5. PREDNISOLONE [Concomitant]
     Route: 048
  6. FOLIC ACID [Concomitant]
  7. TRAMADOL [Concomitant]
  8. CITALOPRAM [Concomitant]
  9. ALENDRONIC ACID [Concomitant]
  10. CETIRIZINE [Concomitant]
  11. PERINDOPRIL [Concomitant]
  12. ETODOLAC [Concomitant]
     Route: 048

REACTIONS (3)
  - Pneumonitis [Recovering/Resolving]
  - Hypersensitivity [Recovering/Resolving]
  - Alveolitis allergic [Unknown]
